FAERS Safety Report 15772928 (Version 2)
Quarter: 2019Q4

REPORT INFORMATION
  Report Type: Spontaneous
  Country: MY (occurrence: MY)
  Receive Date: 20181228
  Receipt Date: 20191112
  Transmission Date: 20200122
  Serious: Yes (Hospitalization)
  Sender: FDA-Public Use
  Company Number: MY-SHIRE-MY201849523

PATIENT

DRUGS (4)
  1. IDURSULFASE [Suspect]
     Active Substance: IDURSULFASE
     Indication: MUCOPOLYSACCHARIDOSIS II
     Dosage: 12 MILLIGRAM, 1X/WEEK
     Route: 042
     Dates: start: 20151119, end: 20190308
  2. IDURSULFASE [Suspect]
     Active Substance: IDURSULFASE
     Dosage: 12 MILLIGRAM
     Route: 041
     Dates: start: 20181130, end: 20181130
  3. CETRIZINE [Concomitant]
     Active Substance: CETIRIZINE HYDROCHLORIDE
     Indication: PRODUCT USED FOR UNKNOWN INDICATION
  4. PREDNISOLONE. [Concomitant]
     Active Substance: PREDNISOLONE
     Indication: PRODUCT USED FOR UNKNOWN INDICATION

REACTIONS (10)
  - Pallor [Recovered/Resolved]
  - Body temperature increased [Recovered/Resolved]
  - Rash [Recovered/Resolved]
  - Restlessness [Recovered/Resolved]
  - Respiratory rate increased [Recovered/Resolved]
  - Pulse volume decreased [Recovered/Resolved]
  - Livedo reticularis [Recovered/Resolved]
  - Cardiovascular disorder [Recovered/Resolved]
  - Chills [Recovered/Resolved]
  - Nasopharyngitis [Recovered/Resolved]

NARRATIVE: CASE EVENT DATE: 20181130
